FAERS Safety Report 25130625 (Version 2)
Quarter: 2025Q4

REPORT INFORMATION
  Report Type: Spontaneous
  Country: BR (occurrence: BR)
  Receive Date: 20250327
  Receipt Date: 20251110
  Transmission Date: 20260118
  Serious: Yes (Other)
  Sender: ROCHE
  Company Number: BR-002147023-NVSC2025BR046397

PATIENT
  Age: 66 Year
  Sex: Male

DRUGS (7)
  1. LUCENTIS [Suspect]
     Active Substance: RANIBIZUMAB
     Indication: Product used for unknown indication
     Dosage: UNK
     Route: 065
  2. SIMVASTATIN [Suspect]
     Active Substance: SIMVASTATIN
     Indication: Coronary artery disease
     Dosage: UNK
     Route: 065
     Dates: start: 2013
  3. SIMVASTATIN [Suspect]
     Active Substance: SIMVASTATIN
     Indication: Dyslipidaemia
  4. VOTRIENT [Suspect]
     Active Substance: PAZOPANIB HYDROCHLORIDE
     Indication: Pelvic neoplasm
     Route: 065
  5. INCLISIRAN [Suspect]
     Active Substance: INCLISIRAN
     Indication: Blood cholesterol increased
     Dosage: 200 MILLIGRAM PER MILLILITRE (200 MG/ML INJECTABLE SOLUTION CONTAINED IN FILLED CLEAR GLASS SYRINGE
     Route: 065
  6. INCLISIRAN [Suspect]
     Active Substance: INCLISIRAN
     Indication: Dyslipidaemia
  7. INCLISIRAN [Suspect]
     Active Substance: INCLISIRAN
     Indication: Coronary artery disease

REACTIONS (13)
  - Chronic coronary syndrome [Unknown]
  - Cellulitis [Unknown]
  - Blood creatine phosphokinase increased [Unknown]
  - Eczema [Recovering/Resolving]
  - Coronary artery disease [Unknown]
  - Neoplasm [Unknown]
  - Dyslipidaemia [Unknown]
  - Urticaria chronic [Unknown]
  - Blood cholesterol abnormal [Unknown]
  - Illness [Unknown]
  - Sciatica [Unknown]
  - Back pain [Unknown]
  - Feeling abnormal [Unknown]

NARRATIVE: CASE EVENT DATE: 20210701
